FAERS Safety Report 5223028-0 (Version None)
Quarter: 2007Q1

REPORT INFORMATION
  Report Type: 
  Country: None (occurrence: None)
  Receive Date: 20070129
  Receipt Date: 20061211
  Transmission Date: 20070707
  Serious: Yes (Other)
  Sender: FDA-Public Use
  Company Number: US-PFIZER INC-2006150379

PATIENT
  Sex: Male

DRUGS (3)
  1. BEXTRA [Suspect]
     Route: 048
  2. CELEBREX [Suspect]
     Route: 048
  3. VIOXX [Suspect]
     Route: 048

REACTIONS (6)
  - ANGIOPATHY [None]
  - CARDIOMYOPATHY [None]
  - MYOCARDIAL INFARCTION [None]
  - SKIN ULCER [None]
  - STEVENS-JOHNSON SYNDROME [None]
  - THROMBOSIS [None]
